FAERS Safety Report 5455971-1 (Version None)
Quarter: 2007Q3

REPORT INFORMATION
  Report Type: 
  Country: None (occurrence: None)
  Receive Date: 20070918
  Receipt Date: 20070907
  Transmission Date: 20080115
  Serious: Yes (Other)
  Sender: FDA-Public Use
  Company Number: GB-ROCHE-516339

PATIENT
  Age: 53 Year
  Sex: Male
  Weight: 139 kg

DRUGS (5)
  1. ORLISTAT [Suspect]
     Indication: OBESITY
     Route: 048
     Dates: start: 20051101
  2. ASPIRIN [Concomitant]
     Route: 048
  3. ENALAPRIL MALEATE [Concomitant]
     Indication: HYPERTENSION
     Dosage: DRUG REPORTED AS ENALOPRIL.
     Route: 048
  4. METFORMIN HCL [Concomitant]
     Route: 048
  5. SIMVASTATIN [Concomitant]
     Indication: HYPERCHOLESTEROLAEMIA
     Dosage: NOCTE.
     Route: 048

REACTIONS (1)
  - THROMBOSIS [None]
